FAERS Safety Report 19874927 (Version 1)
Quarter: 2021Q3

REPORT INFORMATION
  Report Type: Spontaneous
  Country: FR (occurrence: FR)
  Receive Date: 20210922
  Receipt Date: 20210922
  Transmission Date: 20211014
  Serious: Yes (Hospitalization)
  Sender: FDA-Public Use
  Company Number: FR-BAXTER-2021BAX028126

PATIENT
  Age: 60 Year
  Sex: Female

DRUGS (12)
  1. SELENIUM [Suspect]
     Active Substance: SELENIUM
     Indication: PARENTERAL NUTRITION
     Dosage: FORMULA PDN19L
     Route: 065
     Dates: start: 20210831, end: 20210901
  2. MGCL2 [Suspect]
     Active Substance: MAGNESIUM CHLORIDE
     Indication: PARENTERAL NUTRITION
     Dosage: 500 ML, FORMULA PDN19L
     Route: 065
     Dates: start: 20210831, end: 20210901
  3. NACL [Suspect]
     Active Substance: SODIUM CHLORIDE
     Indication: PARENTERAL NUTRITION
     Dosage: 500 ML, FORMULA PDN19L
     Route: 065
     Dates: start: 20210831, end: 20210901
  4. CLINOLEIC [Suspect]
     Active Substance: OLIVE OIL\SOYBEAN OIL
     Indication: PARENTERAL NUTRITION
     Dosage: POCHE5, FORMULA PDN19L
     Route: 065
     Dates: start: 20210831, end: 20210901
  5. KCL [Suspect]
     Active Substance: POTASSIUM CHLORIDE
     Indication: PARENTERAL NUTRITION
     Dosage: 500 ML, FORMULA PDN19L
     Route: 065
     Dates: start: 20210831, end: 20210901
  6. EAU POUR PREPARATIONS INJECTABLES VIAFLO, SOLVANT POUR PREPARATION PAR [Suspect]
     Active Substance: WATER
     Indication: PARENTERAL NUTRITION
     Dosage: FORMULA PDN19L
     Route: 065
     Dates: start: 20210831, end: 20210901
  7. CERNEVIT [Suspect]
     Active Substance: VITAMINS
     Indication: PARENTERAL NUTRITION
     Dosage: FORMULA PDN19L
     Route: 065
     Dates: start: 20210831, end: 20210901
  8. GLUCOSE [Suspect]
     Active Substance: DEXTROSE
     Indication: PARENTERAL NUTRITION
     Dosage: FORMULA PDN19L
     Route: 065
     Dates: start: 20210831, end: 20210901
  9. PHOCYTAN [Suspect]
     Active Substance: .ALPHA.-GLUCOSE-1-PHOSPHATE
     Indication: PARENTERAL NUTRITION
     Dosage: FORMULA PDN19L
     Route: 065
     Dates: start: 20210831, end: 20210901
  10. CALCIUM GLUCONATE. [Suspect]
     Active Substance: CALCIUM GLUCONATE
     Indication: PARENTERAL NUTRITION
     Dosage: 500 ML, FORMULA PDN19L
     Route: 065
     Dates: start: 20210831, end: 20210901
  11. NA LACTATE [Suspect]
     Active Substance: SODIUM LACTATE
     Indication: PARENTERAL NUTRITION
     Dosage: FORMULA PDN19L
     Route: 065
     Dates: start: 20210831, end: 20210901
  12. VINTENE, SOLUTION INJECTABLE POUR PERFUSION [Suspect]
     Active Substance: AMINO ACIDS, SOURCE UNSPECIFIED
     Indication: PARENTERAL NUTRITION
     Dosage: FORMULA PDN19L
     Route: 065
     Dates: start: 20210831, end: 20210901

REACTIONS (1)
  - Klebsiella bacteraemia [Unknown]

NARRATIVE: CASE EVENT DATE: 20210831
